FAERS Safety Report 4538336-6 (Version None)
Quarter: 2004Q4

REPORT INFORMATION
  Report Type: 
  Country: None (occurrence: None)
  Receive Date: 20041223
  Receipt Date: 20040930
  Transmission Date: 20050328
  Serious: Yes (Hospitalization)
  Sender: FDA-Public Use
  Company Number: 6010844

PATIENT
  Age: 65 Year
  Sex: Female

DRUGS (11)
  1. EUTHYROX (TABLETS) (LEVOTHYROXINE SODIUM) [Suspect]
     Indication: GOITRE
     Dosage: 75,000 MCG ORAL
     Route: 048
     Dates: start: 19940101
  2. FALITHROM (TABLETS) (PHENPROCOUMON) [Suspect]
     Indication: ATRIAL FIBRILLATION
     Dosage: 15 MG, ORAL
     Route: 048
     Dates: start: 20040108
  3. ALLOPURINOL (TABLETS) (ALLOPURINOL) [Suspect]
     Dosage: 100,0000 MG (100 MG, 1 IN 1 D) ORAL
     Route: 048
  4. ALLERGOPOS (DROPS) (ANTAZOLINE PHOSPHATE, TETRYZOLINE HYDROCHLORIDE, R [Concomitant]
  5. BRONCHO SPRAY (AEROSOL FOR INHALATION) (SALBUTAMOL) [Concomitant]
  6. CENTRUM (TABLETS) (VITAMINS NOS, MINERALS NOS) [Concomitant]
  7. KYTTA-COR NOVO (TABLETS) (CRATAEGUS EXTRACT) [Concomitant]
  8. NOVONORM (TABLETS) (REPAGLINIDE) [Concomitant]
  9. SYMBICORT TURBUHALER (AEROSOL FOR INHALATION) (FORMOTEROL FUMARATE, BU [Concomitant]
  10. TAMBOCOR (TABLETS) (FLECAINIDE ACETATE) [Concomitant]
  11. VITAMIN E AL (CAPSULES) (TOCOPHEROL) [Concomitant]

REACTIONS (5)
  - COLONIC POLYP [None]
  - DRUG INTERACTION [None]
  - GASTRITIS [None]
  - GASTROINTESTINAL HAEMORRHAGE [None]
  - HELICOBACTER PYLORI IDENTIFICATION TEST POSITIVE [None]
